FAERS Safety Report 8031740-3 (Version None)
Quarter: 2012Q1

REPORT INFORMATION
  Report Type: 
  Country: None (occurrence: None)
  Receive Date: 20120109
  Receipt Date: 20120105
  Transmission Date: 20120608
  Serious: No
  Sender: FDA-Public Use
  Company Number: US-BAYER-2012-002339

PATIENT
  Age: 79 Year
  Sex: Female
  Weight: 71.202 kg

DRUGS (5)
  1. VITAMIN TAB [Concomitant]
  2. ASPIRIN [Concomitant]
  3. ATENOLOL [Concomitant]
  4. ALEVE (CAPLET) [Suspect]
     Indication: MYALGIA
     Dosage: UNK
     Route: 048
  5. QUINAPRIL [Concomitant]

REACTIONS (2)
  - NO ADVERSE EVENT [None]
  - MYALGIA [None]
